FAERS Safety Report 14278455 (Version 2)
Quarter: 2018Q3

REPORT INFORMATION
  Report Type: Spontaneous
  Country: US (occurrence: US)
  Receive Date: 20171211
  Receipt Date: 20180712
  Transmission Date: 20181010
  Serious: Yes (Other)
  Sender: FDA-Public Use
  Company Number: US-OTSUKA-2017_009797

PATIENT
  Sex: Female

DRUGS (2)
  1. ABILIFY [Suspect]
     Active Substance: ARIPIPRAZOLE
     Dosage: UNK
     Route: 065
     Dates: start: 2011, end: 2017
  2. ABILIFY [Suspect]
     Active Substance: ARIPIPRAZOLE
     Indication: BIPOLAR DISORDER
     Dosage: 5 MG, QD
     Route: 065
     Dates: start: 200904, end: 201612

REACTIONS (9)
  - Suicide attempt [Recovered/Resolved]
  - Suicidal ideation [Recovered/Resolved]
  - Obsessive-compulsive disorder [Recovered/Resolved]
  - Economic problem [Unknown]
  - Bankruptcy [Unknown]
  - Compulsive shopping [Recovered/Resolved]
  - Impulsive behaviour [Recovered/Resolved]
  - Gambling disorder [Recovered/Resolved]
  - Prescribed underdose [Unknown]
